FAERS Safety Report 12548813 (Version 2)
Quarter: 2016Q3

REPORT INFORMATION
  Report Type: Spontaneous
  Country: GB (occurrence: GB)
  Receive Date: 20160712
  Receipt Date: 20160801
  Transmission Date: 20161109
  Serious: Yes (Life-Threatening)
  Sender: FDA-Public Use
  Company Number: GB-GLAXOSMITHKLINE-GB2016096358

PATIENT
  Age: 91 Year
  Sex: Male
  Weight: 79.38 kg

DRUGS (4)
  1. LOSARTAN POTASSIUM. [Concomitant]
     Active Substance: LOSARTAN POTASSIUM
     Indication: HYPERTENSION
     Dosage: 25 MG, QD, IN THE MORNING
     Route: 065
     Dates: start: 20151217
  2. PARACETAMOL AND CODEINE PHOSPHATE [Concomitant]
     Active Substance: ACETAMINOPHEN\CODEINE PHOSPHATE
     Dosage: UNK
  3. AVAMYS [Suspect]
     Active Substance: FLUTICASONE FUROATE
     Indication: NASAL CONGESTION
     Dosage: 27.5 ?G, BID, EACH NOSTRIL - IN THE MORNING AND AT NIGHT
     Route: 045
     Dates: start: 20160601, end: 20160612
  4. AVAMYS [Suspect]
     Active Substance: FLUTICASONE FUROATE
     Indication: CATARRH

REACTIONS (6)
  - Peripheral coldness [Recovered/Resolved]
  - Chills [Recovered/Resolved]
  - Feeling abnormal [Recovered/Resolved]
  - Feeling hot [Recovered/Resolved]
  - Chest pain [Recovered/Resolved]
  - Back pain [Recovered/Resolved]

NARRATIVE: CASE EVENT DATE: 20160612
